FAERS Safety Report 9717213 (Version 2)
Quarter: 2014Q1

REPORT INFORMATION
  Report Type: Spontaneous
  Country: GB (occurrence: GB)
  Receive Date: 20131127
  Receipt Date: 20140307
  Transmission Date: 20141002
  Serious: Yes (Hospitalization)
  Sender: FDA-Public Use
  Company Number: GB-009507513-1311GBR010740

PATIENT
  Age: 17 Year
  Sex: Female

DRUGS (3)
  1. NEXPLANON [Suspect]
     Indication: CONTRACEPTION
     Dosage: 68 MG, UNK
     Route: 059
     Dates: start: 201110, end: 20131102
  2. ACETAZOLAMIDE [Concomitant]
  3. TOPAMAX [Concomitant]

REACTIONS (2)
  - Intracranial pressure increased [Not Recovered/Not Resolved]
  - Weight increased [Not Recovered/Not Resolved]
